FAERS Safety Report 15645942 (Version 2)
Quarter: 2018Q4

REPORT INFORMATION
  Report Type: Spontaneous
  Country: US (occurrence: US)
  Receive Date: 20181121
  Receipt Date: 20181122
  Transmission Date: 20190205
  Serious: No
  Sender: FDA-Public Use
  Company Number: US-009507513-1810USA011481

PATIENT
  Age: 71 Year
  Sex: Male
  Weight: 53 kg

DRUGS (7)
  1. GEMCITABINE [Concomitant]
     Active Substance: GEMCITABINE\GEMCITABINE HYDROCHLORIDE
     Dosage: 1600 MILLIGRAM, TOTAL DAILY DOSE 1600MG
     Route: 042
     Dates: start: 20181023, end: 20181023
  2. EMEND [Suspect]
     Active Substance: APREPITANT
     Dosage: 150 MILLIGRAM, ONCE
     Route: 042
     Dates: start: 20181030, end: 20181030
  3. MAGNESIUM SULFATE. [Concomitant]
     Active Substance: MAGNESIUM SULFATE
     Indication: NEOPLASM MALIGNANT
     Dosage: 2 GRAM, QD
     Route: 042
     Dates: start: 20181023, end: 20181023
  4. DEXAMETHASONE. [Concomitant]
     Active Substance: DEXAMETHASONE
     Dosage: 12 MILLIGRAM, QD
     Route: 042
     Dates: start: 20181023, end: 20181023
  5. EMEND [Suspect]
     Active Substance: APREPITANT
     Indication: NEOPLASM MALIGNANT
     Dosage: 150 MILLIGRAM, ONCE
     Route: 042
     Dates: start: 20181023, end: 20181023
  6. PALONOSETRON HYDROCHLORIDE. [Concomitant]
     Active Substance: PALONOSETRON HYDROCHLORIDE
     Dosage: 0.25MG.TOTAL DAILY DOSE 0.25MG
     Route: 042
     Dates: start: 20181023, end: 20181023
  7. CISPLATIN. [Concomitant]
     Active Substance: CISPLATIN
     Dosage: 50 MILLIGRAM, QD
     Route: 042
     Dates: start: 20181023, end: 20181023

REACTIONS (4)
  - Urticaria [Recovered/Resolved]
  - Infusion site pain [Recovered/Resolved]
  - Product use in unapproved indication [Unknown]
  - Infusion site pain [Recovered/Resolved]

NARRATIVE: CASE EVENT DATE: 20181023
